FAERS Safety Report 9989011 (Version 1)
Quarter: 2014Q1

REPORT INFORMATION
  Report Type: Report from Study
  Country: US (occurrence: US)
  Receive Date: 20140310
  Receipt Date: 20140310
  Transmission Date: 20141002
  Serious: No
  Sender: FDA-Public Use
  Company Number: US-ABBVIE-13P-163-1128969-00

PATIENT
  Age: 35 Year
  Sex: Female

DRUGS (13)
  1. HUMIRA [Suspect]
     Indication: PSORIASIS
     Dates: start: 20130724, end: 20130724
  2. HUMIRA [Suspect]
     Dates: start: 20130731
  3. NEXIUM [Concomitant]
     Indication: PRODUCT USED FOR UNKNOWN INDICATION
     Dosage: 40 MG DAILY
  4. NEXIUM [Concomitant]
     Dosage: 40 MG DAILY
  5. NEXIUM [Concomitant]
     Dosage: 40 MG DAILY
  6. TOPROL [Concomitant]
     Indication: PRODUCT USED FOR UNKNOWN INDICATION
     Dosage: 100 MG DAILY
  7. LEXAPRO [Concomitant]
     Indication: PRODUCT USED FOR UNKNOWN INDICATION
     Dosage: 20 MG DAILY
  8. MVI [Concomitant]
     Indication: PRODUCT USED FOR UNKNOWN INDICATION
  9. MVI [Concomitant]
     Dosage: 40 MG DAILY
  10. MVI [Concomitant]
     Dosage: 40 MG DAILY
  11. VITAMIN C [Concomitant]
     Indication: PRODUCT USED FOR UNKNOWN INDICATION
     Dosage: DAILY
  12. VITAMIN C [Concomitant]
     Dosage: 40 MG DAILY
  13. VITAMIN C [Concomitant]
     Dosage: 40 MG DAILY

REACTIONS (2)
  - Rash erythematous [Not Recovered/Not Resolved]
  - Rash pruritic [Not Recovered/Not Resolved]
